FAERS Safety Report 7108120-8 (Version None)
Quarter: 2010Q4

REPORT INFORMATION
  Report Type: 
  Country: None (occurrence: None)
  Receive Date: 20101117
  Receipt Date: 20101105
  Transmission Date: 20110411
  Serious: Yes (Other)
  Sender: FDA-Public Use
  Company Number: US-ELI_LILLY_AND_COMPANY-US201011001853

PATIENT
  Sex: Female

DRUGS (3)
  1. HUMALOG [Suspect]
     Indication: DIABETES MELLITUS
     Dosage: UNK, AS NEEDED
     Dates: start: 20101105
  2. HUMULIN N [Suspect]
     Indication: DIABETES MELLITUS
     Dosage: 18 U, EACH MORNING
     Dates: start: 20101005
  3. HUMULIN N [Suspect]
     Dosage: 15 U, EACH EVENING
     Dates: start: 20101005, end: 20101103

REACTIONS (5)
  - BLOOD GLUCOSE INCREASED [None]
  - BLOOD UREA INCREASED [None]
  - FALL [None]
  - MOVEMENT DISORDER [None]
  - MUSCULAR WEAKNESS [None]
